FAERS Safety Report 6674117-5 (Version None)
Quarter: 2010Q2

REPORT INFORMATION
  Report Type: 
  Country: None (occurrence: None)
  Receive Date: 20100407
  Receipt Date: 20100326
  Transmission Date: 20101027
  Serious: Yes (Hospitalization)
  Sender: FDA-Public Use
  Company Number: TCI2010A01156

PATIENT
  Age: 55 Year
  Sex: Male

DRUGS (7)
  1. ACTOS [Suspect]
     Indication: DIABETES MELLITUS
     Dosage: 15 MG (15 MG, 1 D) PER ORAL; PER ORAL
     Route: 048
     Dates: start: 20070607, end: 20091001
  2. ACTOS [Suspect]
     Indication: DIABETES MELLITUS
     Dosage: 15 MG (15 MG, 1 D) PER ORAL; PER ORAL
     Route: 048
     Dates: start: 20091201, end: 20091201
  3. AMARYL [Concomitant]
  4. DIOVAN [Concomitant]
  5. METFORMIN HYDROCHLORIDE [Concomitant]
  6. LIPITOR [Concomitant]
  7. ASPIRIN [Concomitant]

REACTIONS (4)
  - ABASIA [None]
  - ARTHRALGIA [None]
  - IMPAIRED WORK ABILITY [None]
  - WEIGHT INCREASED [None]
